FAERS Safety Report 19156020 (Version 1)
Quarter: 2021Q2

REPORT INFORMATION
  Report Type: Spontaneous
  Country: CN (occurrence: CN)
  Receive Date: 20210419
  Receipt Date: 20210419
  Transmission Date: 20210717
  Serious: Yes (Other)
  Sender: FDA-Public Use
  Company Number: CN-PFIZER INC-2021395347

PATIENT
  Age: 3 Year
  Sex: Male
  Weight: 15 kg

DRUGS (2)
  1. METHOTREXATE. [Suspect]
     Active Substance: METHOTREXATE
     Indication: ACUTE LYMPHOCYTIC LEUKAEMIA
     Dosage: 12.000 MG, 1X/DAY
     Dates: start: 20210301, end: 20210301
  2. METHOTREXATE. [Suspect]
     Active Substance: METHOTREXATE
     Dosage: 1.120 G, 1X/DAY
     Route: 042
     Dates: start: 20210301, end: 20210301

REACTIONS (3)
  - Stomatitis [Recovering/Resolving]
  - Pharyngeal erythema [Recovering/Resolving]
  - Anal inflammation [Recovering/Resolving]

NARRATIVE: CASE EVENT DATE: 20210303
